FAERS Safety Report 6719079-7 (Version None)
Quarter: 2010Q2

REPORT INFORMATION
  Report Type: 
  Country: None (occurrence: None)
  Receive Date: 20100511
  Receipt Date: 20100428
  Transmission Date: 20101027
  Serious: No
  Sender: FDA-Public Use
  Company Number: US-SOLVAY-00210002665

PATIENT
  Age: 2 Year
  Sex: Female
  Weight: 17.045 kg

DRUGS (1)
  1. ANDROGEL [Suspect]
     Indication: ACCIDENTAL EXPOSURE
     Dosage: DAILY DOSE: 5 GRAM(S)
     Route: 062
     Dates: start: 20081001

REACTIONS (2)
  - ENLARGED CLITORIS [None]
  - PRECOCIOUS PUBERTY [None]
